FAERS Safety Report 16074231 (Version 3)
Quarter: 2022Q1

REPORT INFORMATION
  Report Type: Spontaneous
  Country: BE (occurrence: BE)
  Receive Date: 20190314
  Receipt Date: 20220206
  Transmission Date: 20220424
  Serious: Yes (Death, Hospitalization, Other)
  Sender: FDA-Public Use
  Company Number: PHHY2019BE044799

PATIENT
  Age: 63 Year
  Sex: Male

DRUGS (5)
  1. INFLIXIMAB [Suspect]
     Active Substance: INFLIXIMAB
     Indication: Immune-mediated enterocolitis
     Dosage: 5 MG/KG, UNKNOWN
     Route: 065
  2. INFLIXIMAB [Suspect]
     Active Substance: INFLIXIMAB
     Indication: Colitis
  3. METHYLPREDNISOLONE [Suspect]
     Active Substance: METHYLPREDNISOLONE
     Indication: Immune-mediated enterocolitis
     Dosage: 32 MG, BID
     Route: 042
  4. METHYLPREDNISOLONE [Suspect]
     Active Substance: METHYLPREDNISOLONE
     Dosage: 120 MG, QD
     Route: 042
  5. OPDIVO [Concomitant]
     Active Substance: NIVOLUMAB
     Indication: Adenocarcinoma
     Dosage: UNK UNK, BIW , 1 NO UNIT, EVERY 2 WEEKS
     Route: 065
     Dates: start: 201701

REACTIONS (14)
  - Pneumonia [Fatal]
  - Septic shock [Fatal]
  - Abdominal abscess [Fatal]
  - Infection [Fatal]
  - Drug ineffective for unapproved indication [Fatal]
  - Large intestine perforation [Unknown]
  - Abdominal pain [Unknown]
  - Therapeutic response decreased [Unknown]
  - Night sweats [Unknown]
  - Diarrhoea haemorrhagic [Unknown]
  - General physical health deterioration [Unknown]
  - Peritonitis [Unknown]
  - Colitis [Unknown]
  - Off label use [Unknown]

NARRATIVE: CASE EVENT DATE: 20180510
